FAERS Safety Report 8256057-3 (Version None)
Quarter: 2012Q2

REPORT INFORMATION
  Report Type: 
  Country: None (occurrence: None)
  Receive Date: 20120403
  Receipt Date: 20120327
  Transmission Date: 20120825
  Serious: Yes (Hospitalization)
  Sender: FDA-Public Use
  Company Number: US-ASTRAZENECA-2012SE20480

PATIENT
  Age: 71 Year
  Sex: Male
  Weight: 68.9 kg

DRUGS (2)
  1. COREG [Concomitant]
     Dates: start: 20070101
  2. CRESTOR [Suspect]
     Indication: BLOOD CHOLESTEROL INCREASED
     Route: 048

REACTIONS (4)
  - DISCOMFORT [None]
  - ASTHENIA [None]
  - DIZZINESS [None]
  - GAIT DISTURBANCE [None]
